FAERS Safety Report 4812342-6 (Version None)
Quarter: 2005Q4

REPORT INFORMATION
  Report Type: 
  Country: None (occurrence: None)
  Receive Date: 20051027
  Receipt Date: 20051027
  Transmission Date: 20060501
  Serious: No
  Sender: FDA-Public Use
  Company Number: None

PATIENT
  Age: 62 Year
  Sex: Male
  Weight: 68.7 kg

DRUGS (18)
  1. PENTAMIDINE [Suspect]
     Indication: ANTIBIOTIC PROPHYLAXIS
     Dosage: 300MG   ONCE   INHAL
     Route: 055
     Dates: start: 20050707, end: 20050707
  2. AZATHIOPRINE [Concomitant]
  3. CIPROFLOXACIN [Concomitant]
  4. CYCLOSPORINE [Concomitant]
  5. DIGOXIN [Concomitant]
  6. LEVALBUTEROL [Concomitant]
  7. FLUCONAZOLE [Concomitant]
  8. FUROSEMIDE [Concomitant]
  9. IPRATROPRIUM [Concomitant]
  10. LINEZOLID [Concomitant]
  11. METRONIDAZOLE [Concomitant]
  12. ONDANSETRON [Concomitant]
  13. PANTOPRAZOLE [Concomitant]
  14. PREDNISONE [Concomitant]
  15. SOTALOL [Concomitant]
  16. BACTRIM [Concomitant]
  17. VALGANCICLOVIR [Concomitant]
  18. ZOLPIDEM [Concomitant]

REACTIONS (1)
  - BRONCHOSPASM [None]
